FAERS Safety Report 7354696-5 (Version None)
Quarter: 2011Q1

REPORT INFORMATION
  Report Type: 
  Country: None (occurrence: None)
  Receive Date: 20110316
  Receipt Date: 20110309
  Transmission Date: 20110831
  Serious: Yes (Hospitalization, Other)
  Sender: FDA-Public Use
  Company Number: US-ELI_LILLY_AND_COMPANY-US201103003537

PATIENT
  Sex: Female

DRUGS (17)
  1. LISINOPRIL [Concomitant]
     Dosage: UNK, UNKNOWN
  2. FLUOXETINE [Concomitant]
     Dosage: UNK, UNKNOWN
  3. FUROSEMIDE [Concomitant]
     Dosage: UNK, UNKNOWN
  4. FORTEO [Suspect]
     Indication: OSTEOPOROSIS
     Dosage: 20 UG, DAILY (1/D)
  5. ENBREL [Concomitant]
     Dosage: UNK, UNKNOWN
  6. LANTUS [Concomitant]
     Dosage: UNK, UNKNOWN
  7. LOVAZA [Concomitant]
     Dosage: UNK, UNKNOWN
  8. PREDNISONE [Concomitant]
     Dosage: UNK, UNKNOWN
  9. OMEPRAZOLE [Concomitant]
     Dosage: UNK, UNKNOWN
  10. SODIUM BICARBONATE [Concomitant]
     Dosage: UNK, UNKNOWN
  11. NOVOLOG [Concomitant]
     Dosage: UNK, UNKNOWN
  12. PERCOCET [Concomitant]
     Dosage: UNK, UNKNOWN
  13. PRAVASTATIN [Concomitant]
     Dosage: UNK, UNKNOWN
  14. ALENDRONATE SODIUM [Concomitant]
     Dosage: UNK, UNKNOWN
  15. CALCITRAL [Concomitant]
     Dosage: UNK, UNKNOWN
  16. LEVOTHROID [Concomitant]
     Dosage: UNK, UNKNOWN
  17. FENTANYL [Concomitant]
     Dosage: UNK, UNKNOWN

REACTIONS (3)
  - RENAL FAILURE [None]
  - URINARY TRACT INFECTION [None]
  - PNEUMONIA [None]
